FAERS Safety Report 4577247-7 (Version None)
Quarter: 2005Q1

REPORT INFORMATION
  Report Type: 
  Country: None (occurrence: None)
  Receive Date: 20050209
  Receipt Date: 20050126
  Transmission Date: 20050727
  Serious: Yes (Death, Hospitalization)
  Sender: FDA-Public Use
  Company Number: 2004AL000832

PATIENT
  Age: 47 Year
  Sex: Female

DRUGS (2)
  1. PHENOBARBITAL TABLETS USP, 30 MG (PUREPAC) [Suspect]
     Dosage: PO
     Route: 048
  2. PHENOBARBITAL ELIXIR USP (ALPHARMA) [Suspect]
     Dosage: PO
     Route: 048

REACTIONS (4)
  - COMPLETED SUICIDE [None]
  - HYPOTENSION [None]
  - INTENTIONAL SELF-INJURY [None]
  - OVERDOSE [None]
